FAERS Safety Report 7095723-2 (Version None)
Quarter: 2010Q4

REPORT INFORMATION
  Report Type: 
  Country: None (occurrence: None)
  Receive Date: 20101111
  Receipt Date: 20101104
  Transmission Date: 20110411
  Serious: Yes (Hospitalization)
  Sender: FDA-Public Use
  Company Number: JP-NOVOPROD-317899

PATIENT
  Age: 52 Year
  Sex: Male

DRUGS (2)
  1. LEVEMIR [Suspect]
     Indication: DIABETES MELLITUS
     Dosage: UNK
     Route: 058
  2. NOVORAPID CHU PENFILL [Suspect]
     Indication: DIABETES MELLITUS
     Route: 058

REACTIONS (2)
  - ANTI-INSULIN ANTIBODY INCREASED [None]
  - HYPERGLYCAEMIA [None]
